FAERS Safety Report 6431151-8 (Version None)
Quarter: 2009Q4

REPORT INFORMATION
  Report Type: 
  Country: None (occurrence: None)
  Receive Date: 20091106
  Receipt Date: 20091102
  Transmission Date: 20100525
  Serious: Yes (Hospitalization, Other)
  Sender: FDA-Public Use
  Company Number: CHPA2009US21458

PATIENT
  Age: 53 Year
  Sex: Male

DRUGS (9)
  1. PRIVATE LABEL (NCH) [Suspect]
     Indication: SMOKING CESSATION THERAPY
     Dosage: 21 MG, QD
     Route: 062
  2. PRIVATE LABEL (NCH) [Suspect]
     Dosage: 14 MG, QD
     Route: 062
  3. PRIVATE LABEL (NCH) [Suspect]
     Dosage: 7 MG, QD
     Route: 062
  4. NAPROXEN [Concomitant]
     Indication: PAIN
  5. METHADONE [Concomitant]
     Indication: PAIN
  6. RANITIDINE [Concomitant]
     Route: 048
  7. SIMVASTATIN [Concomitant]
     Indication: BLOOD CHOLESTEROL INCREASED
  8. ASPIRIN [Concomitant]
  9. PRAZSOIN HCL [Concomitant]

REACTIONS (3)
  - DISEASE RECURRENCE [None]
  - INTENTIONAL DRUG MISUSE [None]
  - TRANSIENT ISCHAEMIC ATTACK [None]
